FAERS Safety Report 17371270 (Version 2)
Quarter: 2020Q1

REPORT INFORMATION
  Report Type: Spontaneous
  Country: US (occurrence: US)
  Receive Date: 20200205
  Receipt Date: 20200205
  Transmission Date: 20200409
  Serious: Yes (Death)
  Sender: FDA-Public Use
  Company Number: US-PFIZER INC-2020045171

PATIENT
  Sex: Female

DRUGS (1)
  1. HEPARIN SODIUM. [Suspect]
     Active Substance: HEPARIN SODIUM
     Indication: DISSEMINATED INTRAVASCULAR COAGULATION
     Dosage: UNK
     Route: 041

REACTIONS (2)
  - Drug ineffective [Fatal]
  - Cardiac arrest [Fatal]
